FAERS Safety Report 5052352-X (Version None)
Quarter: 2006Q3

REPORT INFORMATION
  Report Type: 
  Country: None (occurrence: None)
  Receive Date: 20060717
  Receipt Date: 20060706
  Transmission Date: 20061208
  Serious: Yes (Other)
  Sender: FDA-Public Use
  Company Number: JP-JNJFOC-20060701419

PATIENT
  Age: 41 Year
  Sex: Male

DRUGS (6)
  1. ITRACONAZOLE [Suspect]
     Indication: ANTIFUNGAL PROPHYLAXIS
     Route: 048
  2. RABEPRAZOLE SODIUM [Concomitant]
     Route: 065
  3. URSODESOXYCHOLIC ACID [Concomitant]
     Route: 065
  4. ANTIBIOTICS RESISTANT LACTIC ACID BACTERIAE [Concomitant]
     Route: 048
  5. FLUITRAZEPAM [Concomitant]
     Route: 065
  6. MAGNESIUM OXIDE [Concomitant]
     Route: 048

REACTIONS (1)
  - ELECTROCARDIOGRAM QT PROLONGED [None]
